FAERS Safety Report 9495883 (Version 2)
Quarter: 2013Q3

REPORT INFORMATION
  Report Type: Spontaneous
  Country: US (occurrence: US)
  Receive Date: 20130903
  Receipt Date: 20130911
  Transmission Date: 20140515
  Serious: No
  Sender: FDA-Public Use
  Company Number: US-009507513-1308USA013812

PATIENT
  Sex: Female

DRUGS (2)
  1. NEXPLANON [Suspect]
     Indication: CONTRACEPTION
     Dosage: 1 ROD
     Route: 059
     Dates: start: 20130813, end: 201308
  2. IMPLANON [Suspect]
     Dosage: UNK
     Route: 059
     Dates: start: 201008, end: 20130813

REACTIONS (3)
  - Device expulsion [Unknown]
  - Pain in extremity [Recovering/Resolving]
  - Implant site infection [Recovering/Resolving]
